FAERS Safety Report 5787847-4 (Version None)
Quarter: 2008Q2

REPORT INFORMATION
  Report Type: 
  Country: None (occurrence: None)
  Receive Date: 20080624
  Receipt Date: 20080624
  Transmission Date: 20081010
  Serious: Yes (Other)
  Sender: FDA-Public Use
  Company Number: None

PATIENT
  Sex: Female
  Weight: 62.5964 kg

DRUGS (3)
  1. RITALIN-SR [Suspect]
     Indication: ATTENTION DEFICIT/HYPERACTIVITY DISORDER
     Dosage: 20MG 3X PER DAY
     Dates: start: 19980101, end: 20080623
  2. RITALIN [Suspect]
     Dosage: 20 MG 1X PER DAY
     Dates: start: 19980101, end: 20080623
  3. CARISPORODOL [Concomitant]

REACTIONS (1)
  - MEMORY IMPAIRMENT [None]
